FAERS Safety Report 8535700-5 (Version None)
Quarter: 2012Q3

REPORT INFORMATION
  Report Type: 
  Country: None (occurrence: None)
  Receive Date: 20120725
  Receipt Date: 20120720
  Transmission Date: 20120928
  Serious: No
  Sender: FDA-Public Use
  Company Number: US-PFIZER INC-2012135572

PATIENT
  Sex: Female
  Weight: 52.608 kg

DRUGS (15)
  1. ADVIL [Suspect]
     Indication: LIGAMENT SPRAIN
     Dosage: THREE TABLETS OF 200MG, 3X/DAY
     Route: 048
     Dates: start: 20120604
  2. IRON [Concomitant]
     Dosage: UNK
  3. ASPIRIN [Concomitant]
     Dosage: 81 MG, UNK
  4. ADVIL [Suspect]
     Dosage: UNK
  5. BONIVA [Concomitant]
     Indication: OSTEOARTHRITIS
  6. VITAMIN D [Concomitant]
     Dosage: UNK
  7. FOLIC ACID [Concomitant]
     Dosage: 1 MG, UNK
  8. VITAMIN A [Concomitant]
     Dosage: UNK
  9. PREDNISONE [Suspect]
     Indication: LIGAMENT SPRAIN
     Dosage: UNK
     Dates: end: 20120604
  10. TYLENOL [Concomitant]
     Dosage: UNK
  11. BONIVA [Concomitant]
     Indication: SCOLIOSIS
     Dosage: UNK
     Route: 042
  12. CALCIUM [Concomitant]
     Dosage: UNK
  13. VITAMIN B-12 [Concomitant]
     Dosage: UNK
  14. PROCRIT [Concomitant]
     Indication: BLOOD DISORDER
     Dosage: ONCE IN EVERY 8 WEEKS
  15. ZOCOR [Concomitant]
     Indication: BLOOD CHOLESTEROL INCREASED
     Dosage: 10 MG, UNK

REACTIONS (4)
  - ARTHROPATHY [None]
  - ARTHRALGIA [None]
  - BONE DISORDER [None]
  - MUSCULOSKELETAL CHEST PAIN [None]
